FAERS Safety Report 5285293-3 (Version None)
Quarter: 2007Q2

REPORT INFORMATION
  Report Type: 
  Country: None (occurrence: None)
  Receive Date: 20070403
  Receipt Date: 20070330
  Transmission Date: 20071010
  Serious: Yes (Death)
  Sender: FDA-Public Use
  Company Number: JP-BOEHRINGER INGELHEIM PHARMACEUTICALS, INC.-2007-BP-04570NB

PATIENT
  Age: 65 Year
  Sex: Male

DRUGS (3)
  1. MOBIC [Suspect]
     Indication: MYALGIA
     Route: 048
     Dates: start: 20070122, end: 20070126
  2. INDACIN (INDOMETACIN) [Concomitant]
     Route: 054
  3. NYROZIN [Concomitant]
     Route: 042

REACTIONS (1)
  - RHABDOMYOLYSIS [None]
